FAERS Safety Report 20670559 (Version 2)
Quarter: 2022Q2

REPORT INFORMATION
  Report Type: Report from Study
  Country: CN (occurrence: CN)
  Receive Date: 20220404
  Receipt Date: 20220428
  Transmission Date: 20220721
  Serious: Yes (Life-Threatening, Hospitalization, Other)
  Sender: FDA-Public Use
  Company Number: CN-BAYER-2022A033506

PATIENT
  Age: 69 Year
  Sex: Male
  Weight: 74 kg

DRUGS (38)
  1. RIVAROXABAN [Suspect]
     Active Substance: RIVAROXABAN
     Indication: Cardiovascular event prophylaxis
     Dosage: 2.5 MG, BID
     Route: 048
     Dates: start: 20220302, end: 20220307
  2. RIVAROXABAN [Suspect]
     Active Substance: RIVAROXABAN
     Indication: Coronary artery disease
     Route: 048
  3. RIVAROXABAN [Suspect]
     Active Substance: RIVAROXABAN
     Indication: Peripheral arterial occlusive disease
     Route: 048
  4. ASPIRIN [Suspect]
     Active Substance: ASPIRIN
     Indication: Cardiovascular event prophylaxis
     Dosage: 100 MG, QD
     Route: 065
     Dates: start: 20220301
  5. ASPIRIN [Suspect]
     Active Substance: ASPIRIN
     Indication: Coronary artery disease
  6. ASPIRIN [Suspect]
     Active Substance: ASPIRIN
     Indication: Peripheral arterial occlusive disease
  7. MANNITOL [Concomitant]
     Active Substance: MANNITOL
     Dosage: 125 ML
     Dates: start: 20220307, end: 20220308
  8. MANNITOL [Concomitant]
     Active Substance: MANNITOL
     Dosage: 125 ML
     Dates: start: 20220308
  9. FUROSEMIDE [Concomitant]
     Active Substance: FUROSEMIDE
     Dosage: 20 MG
     Dates: start: 20220307, end: 20220308
  10. VITAMIN K1 [Concomitant]
     Active Substance: PHYTONADIONE
     Dosage: 10 MG
     Dates: start: 20220308
  11. SODIUM CHLORIDE [Concomitant]
     Active Substance: SODIUM CHLORIDE
     Dosage: 10 MG
     Dates: start: 20220308
  12. POTASSIUM CHLORIDE [Concomitant]
     Active Substance: POTASSIUM CHLORIDE
     Dosage: 20 MG, QD
     Dates: start: 20220308, end: 20220308
  13. DEXTROSE\SODIUM CHLORIDE [Concomitant]
     Active Substance: DEXTROSE\SODIUM CHLORIDE
     Dosage: 500 ML, QD
     Dates: start: 20220308, end: 20220309
  14. DEXTROSE\SODIUM CHLORIDE [Concomitant]
     Active Substance: DEXTROSE\SODIUM CHLORIDE
     Dosage: 400 MG, PRN
     Dates: start: 20220308, end: 20220308
  15. DEXTROSE\SODIUM CHLORIDE [Concomitant]
     Active Substance: DEXTROSE\SODIUM CHLORIDE
     Dosage: 1 DF
     Dates: start: 20220308, end: 20220311
  16. PIRACETAM [Concomitant]
     Active Substance: PIRACETAM
     Dosage: 500 MG, QD
     Dates: start: 20220309
  17. VALPROATE SODIUM [Concomitant]
     Active Substance: VALPROATE SODIUM
     Dosage: 1 DF, PRN
     Dates: start: 20220308, end: 20220308
  18. URAPIDIL [Concomitant]
     Active Substance: URAPIDIL
     Dosage: 8 DF, PRN
     Dates: start: 20220307, end: 20220307
  19. URAPIDIL [Concomitant]
     Active Substance: URAPIDIL
     Dosage: 1 DF, PRN
     Dates: start: 20220307, end: 20220307
  20. URAPIDIL [Concomitant]
     Active Substance: URAPIDIL
     Dosage: 8 DF, PRN
     Dates: start: 20220307, end: 20220308
  21. URAPIDIL [Concomitant]
     Active Substance: URAPIDIL
     Dosage: 12 DF, PRN
     Dates: start: 20220308, end: 20220308
  22. URAPIDIL [Concomitant]
     Active Substance: URAPIDIL
     Dosage: 32 DF, PRN
     Dates: start: 20220309, end: 20220309
  23. URAPIDIL [Concomitant]
     Active Substance: URAPIDIL
     Dosage: 16 DF, PRN
     Dates: start: 20220310, end: 20220310
  24. URAPIDIL [Concomitant]
     Active Substance: URAPIDIL
     Dosage: 32 DF, PRN
     Dates: start: 20220311, end: 20220311
  25. NICARDIPINE [Concomitant]
     Active Substance: NICARDIPINE
     Dosage: 12 DF, PRN
     Dates: start: 20220312, end: 20220312
  26. NICARDIPINE [Concomitant]
     Active Substance: NICARDIPINE
     Dosage: 12 DF, PRN
     Dates: start: 20220313, end: 20220313
  27. NICARDIPINE [Concomitant]
     Active Substance: NICARDIPINE
     Dosage: 4 DF, PRN
     Dates: start: 20220314, end: 20220314
  28. AMLODIPINE [Concomitant]
     Active Substance: AMLODIPINE BESYLATE
     Dosage: 5 MG, QD
     Dates: start: 20220311
  29. PIPERACILLIN AND TAZOBACTAM [Concomitant]
     Active Substance: PIPERACILLIN SODIUM\TAZOBACTAM SODIUM
     Dosage: 4.5 G
     Dates: start: 20220308
  30. ALBUTEROL SULFATE [Concomitant]
     Active Substance: ALBUTEROL SULFATE
     Dosage: 2.5 ML, TID
     Dates: start: 20220308
  31. IPRATROPIUM BROMIDE [Concomitant]
     Active Substance: IPRATROPIUM BROMIDE
     Dosage: 2 ML, TID
     Dates: start: 20220308
  32. BUDESONIDE [Concomitant]
     Active Substance: BUDESONIDE
     Dosage: 2 DF, TID
     Dates: start: 20220308, end: 20220308
  33. ACETYLCYSTEINE [Concomitant]
     Active Substance: ACETYLCYSTEINE
     Dosage: 3 ML, TID
     Dates: start: 20220308
  34. AMBROXOL [Concomitant]
     Active Substance: AMBROXOL
     Dosage: 30 MG, BID
     Dates: start: 20220308
  35. OMEPRAZOLE SODIUM [Concomitant]
     Active Substance: OMEPRAZOLE SODIUM
     Dosage: 40 MG
     Dates: start: 20220308, end: 20220308
  36. UROKINASE [Concomitant]
     Active Substance: UROKINASE
     Dosage: 2 DF, PRN
     Dates: start: 20220308, end: 20220308
  37. HEPARIN SODIUM [Concomitant]
     Active Substance: HEPARIN SODIUM
     Dosage: 2500 DF, ONCE
     Dates: start: 20220308, end: 20220312
  38. INSULIN HUMAN [Concomitant]
     Active Substance: INSULIN HUMAN
     Dosage: 18 IU, QD
     Dates: start: 20220307

REACTIONS (4)
  - Cerebral haemorrhage [Recovering/Resolving]
  - Basal ganglia haemorrhage [Recovering/Resolving]
  - Peripheral arterial occlusive disease [Unknown]
  - Coma [Recovering/Resolving]

NARRATIVE: CASE EVENT DATE: 20220303
